FAERS Safety Report 10994160 (Version 1)
Quarter: 2015Q2

REPORT INFORMATION
  Report Type: Spontaneous
  Country: US (occurrence: US)
  Receive Date: 20150407
  Receipt Date: 20150407
  Transmission Date: 20150821
  Serious: No
  Sender: FDA-Public Use
  Company Number: US-BAYER-2015-099546

PATIENT
  Age: 44 Year
  Sex: Female

DRUGS (1)
  1. GADAVIST [Suspect]
     Active Substance: GADOBUTROL
     Indication: CONTRAST MEDIA REACTION
     Dosage: 8 ML, UNK
     Route: 042
     Dates: start: 20150224

REACTIONS (1)
  - Urticaria [None]

NARRATIVE: CASE EVENT DATE: 20150224
